FAERS Safety Report 4325498-9 (Version None)
Quarter: 2004Q1

REPORT INFORMATION
  Report Type: 
  Country: None (occurrence: None)
  Receive Date: 20040324
  Receipt Date: 20040310
  Transmission Date: 20041129
  Serious: Yes (Death)
  Sender: FDA-Public Use
  Company Number: US-JNJFOC-20040302682

PATIENT
  Age: 46 Year
  Sex: Male

DRUGS (4)
  1. DURAGESIC [Suspect]
     Indication: PAIN
     Dosage: ORAL
     Route: 048
     Dates: end: 20031001
  2. VALIUM [Concomitant]
  3. PERCOCET [Concomitant]
  4. RESTORIL [Concomitant]

REACTIONS (3)
  - BLOOD ALCOHOL [None]
  - INTENTIONAL MISUSE [None]
  - THERAPEUTIC AGENT TOXICITY [None]
